FAERS Safety Report 14099921 (Version 1)
Quarter: 2017Q4

REPORT INFORMATION
  Report Type: Spontaneous
  Country: US (occurrence: US)
  Receive Date: 20171017
  Receipt Date: 20171017
  Transmission Date: 20180321
  Serious: No
  Sender: FDA-Public Use
  Company Number: US-ASTRAZENECA-2017SF04164

PATIENT
  Age: 45 Year
  Sex: Female

DRUGS (2)
  1. ANASTROZOLE. [Suspect]
     Active Substance: ANASTROZOLE
     Route: 048
     Dates: start: 201607
  2. ZOLADEX [Suspect]
     Active Substance: GOSERELIN ACETATE
     Indication: HORMONE SUPPRESSION THERAPY
     Dosage: MONTHLY
     Route: 058
     Dates: start: 201607, end: 201706

REACTIONS (15)
  - Muscle spasms [Unknown]
  - Photophobia [Unknown]
  - Hyperacusis [Unknown]
  - Breast mass [Unknown]
  - Haemorrhage [Recovered/Resolved]
  - Somnolence [Unknown]
  - Migraine [Not Recovered/Not Resolved]
  - Irritability [Unknown]
  - Product use in unapproved indication [Unknown]
  - Thinking abnormal [Unknown]
  - Menstruation irregular [Unknown]
  - Headache [Unknown]
  - Limb discomfort [Unknown]
  - Off label use [Unknown]
  - Therapeutic response unexpected [Unknown]
